FAERS Safety Report 4288620-9 (Version None)
Quarter: 2004Q1

REPORT INFORMATION
  Report Type: 
  Country: None (occurrence: None)
  Receive Date: 20040209
  Receipt Date: 20040127
  Transmission Date: 20041129
  Serious: Yes (Hospitalization)
  Sender: FDA-Public Use
  Company Number: FR-GLAXOSMITHKLINE-B0321336A

PATIENT
  Age: 89 Year
  Sex: Male
  Weight: 61 kg

DRUGS (4)
  1. DEROXAT [Suspect]
     Indication: DEPRESSION
     Dosage: 20MG PER DAY
     Route: 048
  2. TARDYFERON [Suspect]
     Dosage: 80MG PER DAY
     Route: 048
  3. BEDELIX [Suspect]
     Dosage: 1UNIT TWICE PER DAY
     Route: 048
  4. CASODEX [Suspect]
     Indication: PROSTATE CANCER
     Dosage: 50MG PER DAY
     Route: 048

REACTIONS (5)
  - DIFFICULTY IN WALKING [None]
  - DISORIENTATION [None]
  - HEMIPARESIS [None]
  - SUBDURAL HAEMATOMA [None]
  - URINARY INCONTINENCE [None]
